FAERS Safety Report 8995128 (Version 1)
Quarter: 2012Q4

REPORT INFORMATION
  Report Type: Spontaneous
  Country: US (occurrence: None)
  Receive Date: 20121228
  Receipt Date: 20121228
  Transmission Date: 20130627
  Serious: Yes (Hospitalization)
  Sender: FDA-Public Use
  Company Number: None

PATIENT
  Age: 67 Year
  Sex: Male
  Weight: 123.2 kg

DRUGS (2)
  1. LIDOCAINE [Suspect]
     Indication: DYSPEPSIA
     Route: 048
     Dates: start: 20121122, end: 20121122
  2. ALUMINUM HYDROXIDE\MAGNESIUM HYDROXIDE [Suspect]
     Indication: DYSPEPSIA
     Route: 048
     Dates: start: 20121122, end: 20121122

REACTIONS (4)
  - Angioedema [None]
  - Rash [None]
  - Urticaria [None]
  - Pruritus [None]
